FAERS Safety Report 8887085 (Version 1)
Quarter: 2012Q4

REPORT INFORMATION
  Report Type: 
  Country: NZ (occurrence: NZ)
  Receive Date: 20121105
  Receipt Date: 20121105
  Transmission Date: 20130627
  Serious: Yes (Death, Hospitalization)
  Sender: FDA-Public Use
  Company Number: PHHO2004NZ14064

PATIENT
  Age: 47 Year
  Sex: Female

DRUGS (6)
  1. CLOZARIL (CLOZAPINE) [Suspect]
     Indication: SCHIZOPHRENIA
     Dosage: 375 mg, QD
     Route: 048
     Dates: start: 20040123, end: 20041006
  2. CITALOPRAM [Suspect]
     Dosage: 60 mg, QD
     Dates: end: 200405
  3. TEMAZEPAM [Suspect]
     Dosage: 10 mg, PRN
  4. LITHIUM [Concomitant]
     Dosage: 800 mg, QD
  5. LITHIUM [Concomitant]
     Dosage: 1000 mg, QD
     Dates: start: 20040929
  6. VENLAFAXINE [Concomitant]
     Dosage: 225 mg, QD
     Dates: start: 200405

REACTIONS (9)
  - Agranulocytosis [Fatal]
  - Neutropenia [Fatal]
  - Sepsis [Fatal]
  - Multi-organ failure [Unknown]
  - Lower respiratory tract infection [Unknown]
  - Malaise [Unknown]
  - Cough [Unknown]
  - Body temperature increased [Unknown]
  - Respiratory failure [Unknown]
